FAERS Safety Report 9076165 (Version 1)
Quarter: 2013Q1

REPORT INFORMATION
  Report Type: Report from Study
  Country: US (occurrence: US)
  Receive Date: 20130129
  Receipt Date: 20130129
  Transmission Date: 20140127
  Serious: Yes (Hospitalization)
  Sender: FDA-Public Use
  Company Number: US-ABBOTT-12P-163-0929427-00

PATIENT
  Age: 40 None
  Sex: Female

DRUGS (2)
  1. HUMIRA 40 MG/0.8 ML PEN [Suspect]
     Indication: PSORIASIS
     Dates: start: 20110805, end: 20120420
  2. PRENATAL VITAMINS [Concomitant]
     Indication: PRODUCT USED FOR UNKNOWN INDICATION
     Dates: start: 20110908, end: 20120420

REACTIONS (4)
  - Hypertension [Recovered/Resolved]
  - Psoriasis [Unknown]
  - Respiratory tract infection [Recovered/Resolved]
  - Dyspepsia [Recovered/Resolved]
